FAERS Safety Report 5651925-0 (Version None)
Quarter: 2008Q1

REPORT INFORMATION
  Report Type: 
  Country: None (occurrence: None)
  Receive Date: 20080131
  Receipt Date: 20071116
  Transmission Date: 20080703
  Serious: No
  Sender: FDA-Public Use
  Company Number: US200711004429

PATIENT
  Age: 66 Year
  Sex: Female

DRUGS (2)
  1. BYETTA [Suspect]
     Indication: TYPE 2 DIABETES MELLITUS
     Dosage: 5 UG, 2/D, SUBCUTANEOUS ; OTHER, SUBCUTANEOUS
     Route: 058
     Dates: start: 20071116, end: 20071116
  2. BYETTA [Suspect]
     Indication: TYPE 2 DIABETES MELLITUS
     Dosage: 5 UG, 2/D, SUBCUTANEOUS ; OTHER, SUBCUTANEOUS
     Route: 058
     Dates: start: 20071001

REACTIONS (8)
  - DECREASED APPETITE [None]
  - DIZZINESS [None]
  - EARLY SATIETY [None]
  - FEELING ABNORMAL [None]
  - INCORRECT DOSE ADMINISTERED [None]
  - INJECTION SITE BRUISING [None]
  - NAUSEA [None]
  - VOMITING [None]
